FAERS Safety Report 9214720 (Version 1)
Quarter: 2013Q2

REPORT INFORMATION
  Report Type: Spontaneous
  Country: FR (occurrence: FR)
  Receive Date: 20130405
  Receipt Date: 20130405
  Transmission Date: 20140414
  Serious: Yes (Hospitalization)
  Sender: FDA-Public Use
  Company Number: FR-ROCHE-1210718

PATIENT
  Age: 38 Year
  Sex: Male

DRUGS (4)
  1. PEGASYS [Suspect]
     Indication: HEPATITIS C
     Route: 058
     Dates: start: 20120217
  2. COPEGUS [Suspect]
     Indication: HEPATITIS C
     Route: 048
     Dates: start: 20120217
  3. COPEGUS [Suspect]
     Route: 048
     Dates: start: 20120903
  4. INCIVO [Suspect]
     Indication: HEPATITIS C
     Route: 065
     Dates: start: 20120217, end: 20120511

REACTIONS (2)
  - Encephalitis [Recovering/Resolving]
  - Headache [Recovering/Resolving]
